FAERS Safety Report 20405237 (Version 4)
Quarter: 2022Q2

REPORT INFORMATION
  Report Type: Report from Study
  Country: US (occurrence: US)
  Receive Date: 20220131
  Receipt Date: 20220610
  Transmission Date: 20220721
  Serious: Yes (Hospitalization, Other)
  Sender: FDA-Public Use
  Company Number: US-TAKEDA-2022TUS005934

PATIENT
  Age: 37 Year
  Sex: Male

DRUGS (46)
  1. TEDUGLUTIDE [Suspect]
     Active Substance: TEDUGLUTIDE
     Indication: Short-bowel syndrome
     Dosage: 3.4 MILLIGRAM, QD
     Route: 042
     Dates: start: 20190418, end: 20190828
  2. TEDUGLUTIDE [Suspect]
     Active Substance: TEDUGLUTIDE
     Indication: Short-bowel syndrome
     Dosage: 3.4 MILLIGRAM, QD
     Route: 042
     Dates: start: 20190418, end: 20190828
  3. TEDUGLUTIDE [Suspect]
     Active Substance: TEDUGLUTIDE
     Indication: Short-bowel syndrome
     Dosage: 3.4 MILLIGRAM, QD
     Route: 042
     Dates: start: 20190418, end: 20190828
  4. TEDUGLUTIDE [Suspect]
     Active Substance: TEDUGLUTIDE
     Indication: Short-bowel syndrome
     Dosage: 3.4 MILLIGRAM, QD
     Route: 042
     Dates: start: 20190418, end: 20190828
  5. DAPTOMYCIN [Concomitant]
     Active Substance: DAPTOMYCIN
     Indication: Vascular device infection
     Dosage: 600 MILLIGRAM, QD
     Route: 042
     Dates: start: 20210922, end: 20211022
  6. DAPTOMYCIN [Concomitant]
     Active Substance: DAPTOMYCIN
     Dosage: 350 MILLIGRAM, QD
     Route: 042
     Dates: start: 20200212, end: 20200212
  7. MICAFUNGIN [Concomitant]
     Active Substance: MICAFUNGIN
     Indication: Vascular device infection
     Dosage: 100 MILLIGRAM, QD
     Route: 042
     Dates: start: 20210809, end: 20210823
  8. MICAFUNGIN [Concomitant]
     Active Substance: MICAFUNGIN
     Indication: Sepsis
     Dosage: 100 MILLIGRAM, QD
     Route: 042
     Dates: start: 20201015, end: 2020
  9. ENOXAPARIN [Concomitant]
     Active Substance: ENOXAPARIN
     Indication: Aortic thrombosis
     Dosage: 60 MILLIGRAM
     Route: 058
     Dates: start: 20210421, end: 20210421
  10. ENOXAPARIN [Concomitant]
     Active Substance: ENOXAPARIN
     Indication: Vascular device infection
     Dosage: 40 MILLIGRAM, QD
     Route: 058
     Dates: start: 20200713, end: 20200714
  11. ENOXAPARIN [Concomitant]
     Active Substance: ENOXAPARIN
     Indication: Sepsis
     Dosage: 60 MILLIGRAM, BID
     Route: 058
     Dates: start: 20201015
  12. VANCOMYCIN [Concomitant]
     Active Substance: VANCOMYCIN
     Indication: Vascular device infection
     Dosage: 750 MILLIGRAM, BID
     Route: 042
     Dates: start: 20210321, end: 20210401
  13. VANCOMYCIN [Concomitant]
     Active Substance: VANCOMYCIN
     Indication: Sepsis
     Dosage: 1250 MILLIGRAM
     Route: 042
     Dates: start: 20210130, end: 20210130
  14. VANCOMYCIN [Concomitant]
     Active Substance: VANCOMYCIN
     Dosage: 750 MILLIGRAM, BID
     Route: 042
     Dates: start: 20210131, end: 20210303
  15. VANCOMYCIN [Concomitant]
     Active Substance: VANCOMYCIN
     Dosage: 750 MILLIGRAM, BID
     Route: 042
     Dates: start: 20210131
  16. OMEPRAZOLE [Concomitant]
     Active Substance: OMEPRAZOLE
     Indication: Product used for unknown indication
     Dosage: 200 MILLIGRAM, BID
     Route: 048
  17. STELARA [Concomitant]
     Active Substance: USTEKINUMAB
     Indication: Crohn^s disease
     Dosage: 90 MILLIGRAM
     Route: 058
     Dates: start: 20180413
  18. BUDESONIDE [Concomitant]
     Active Substance: BUDESONIDE
     Indication: Crohn^s disease
     Dosage: 2 MILLIGRAM, QD
     Route: 054
     Dates: start: 20190828
  19. HYDROCORTISONE [Concomitant]
     Active Substance: HYDROCORTISONE
     Dosage: 2 MILLIGRAM, QD
     Route: 054
     Dates: start: 20190828
  20. CIPROFLOXACIN [Concomitant]
     Active Substance: CIPROFLOXACIN
     Indication: Anal abscess
     Dosage: 500 MILLIGRAM, BID
     Route: 048
     Dates: start: 20190620
  21. VIBRAMYCIN [Concomitant]
     Active Substance: DOXYCYCLINE
     Indication: Bacteraemia
     Dosage: 100 MILLIGRAM, BID
     Route: 048
     Dates: start: 20191201, end: 20191212
  22. VIBRAMYCIN [Concomitant]
     Active Substance: DOXYCYCLINE
     Indication: Arthralgia
     Dosage: 100 MILLIGRAM, BID
     Route: 048
     Dates: start: 20200201, end: 20200201
  23. LINEZOLID [Concomitant]
     Active Substance: LINEZOLID
     Indication: Bacteraemia
     Dosage: 600 MILLIGRAM, BID
     Dates: start: 20191202, end: 20191212
  24. FENTANYL [Concomitant]
     Active Substance: FENTANYL
     Indication: Arthralgia
     Dosage: 50 MICROGRAM
     Route: 030
     Dates: start: 20200626, end: 20200626
  25. NARCO [Concomitant]
     Route: 065
  26. OXYCODONE AND ACETAMINOPHEN [Concomitant]
     Active Substance: ACETAMINOPHEN\OXYCODONE HYDROCHLORIDE
     Indication: Arthralgia
     Dosage: 325 MILLIGRAM
     Route: 048
     Dates: start: 20200201, end: 20200201
  27. DOXYCYCLINE HYDROCHLORIDE [Concomitant]
     Active Substance: DOXYCYCLINE HYDROCHLORIDE
     Route: 065
  28. Optomycin [Concomitant]
     Route: 065
  29. Penicilline g [Concomitant]
     Dosage: 1.2 INTERNATIONAL UNIT
     Route: 042
     Dates: start: 20200414, end: 20200414
  30. HYDROMORPHONE [Concomitant]
     Active Substance: HYDROMORPHONE
     Indication: Flank pain
     Dosage: 0.5 MILLIGRAM
     Route: 042
     Dates: start: 20200414, end: 20200414
  31. HYDROMORPHONE [Concomitant]
     Active Substance: HYDROMORPHONE
     Indication: Vomiting
     Dosage: 1 MILLIGRAM
     Route: 042
     Dates: start: 20200621, end: 20200621
  32. ONDANSETRON [Concomitant]
     Active Substance: ONDANSETRON
     Indication: Vomiting
     Dosage: 8 MILLIGRAM
     Route: 042
     Dates: start: 20200621, end: 20200621
  33. OXYCODONE [Concomitant]
     Active Substance: OXYCODONE
     Indication: Vomiting
     Dosage: 20 MILLIGRAM
     Route: 048
     Dates: start: 20200621, end: 20200623
  34. OXYCODONE [Concomitant]
     Active Substance: OXYCODONE
     Indication: Vascular device infection
     Dosage: 20 MILLIGRAM
     Route: 048
     Dates: start: 20200713, end: 20200716
  35. ANIDULAFUNGIN [Concomitant]
     Active Substance: ANIDULAFUNGIN
     Indication: Vascular device infection
     Dosage: 100 MILLIGRAM, QD
     Route: 042
     Dates: start: 20200715, end: 20200715
  36. METRONIDAZOLE [Concomitant]
     Active Substance: METRONIDAZOLE
     Indication: Anal abscess
     Dosage: 250 MILLIGRAM, TID
     Route: 048
     Dates: start: 20190620
  37. MIRTAZAPINE [Concomitant]
     Active Substance: MIRTAZAPINE
     Indication: Vascular device infection
     Dosage: 15 MILLIGRAM, QD
     Route: 048
     Dates: start: 20200713, end: 20200714
  38. CEFTAROLINE [Concomitant]
     Active Substance: CEFTAROLINE
     Indication: Sepsis
     Dosage: 300 MILLIGRAM, BID
     Route: 030
     Dates: start: 20200925, end: 20201014
  39. CEFTAROLINE [Concomitant]
     Active Substance: CEFTAROLINE
     Dosage: 600 MILLIGRAM, BID
     Route: 030
     Dates: start: 20201015
  40. ATROPINE\DIPHENOXYLATE [Concomitant]
     Active Substance: ATROPINE\DIPHENOXYLATE
     Indication: Diarrhoea
     Dosage: 5 MILLIGRAM, QID
     Route: 048
     Dates: start: 20180131
  41. IMODIUM [Concomitant]
     Active Substance: LOPERAMIDE HYDROCHLORIDE
     Indication: Diarrhoea
     Dosage: 2 MILLIGRAM, QID
     Route: 048
  42. VITAMINS [Concomitant]
     Active Substance: VITAMINS
     Indication: Hypovitaminosis
     Dosage: 1 DOSAGE FORM, QD
     Route: 048
     Dates: end: 20190515
  43. NORCO [Concomitant]
     Active Substance: ACETAMINOPHEN\HYDROCODONE BITARTRATE
     Indication: Arthralgia
     Dosage: 325 MILLIGRAM
     Route: 048
     Dates: start: 20200626, end: 20200626
  44. DIFLUCAN [Concomitant]
     Active Substance: FLUCONAZOLE
     Dosage: 200 MILLIGRAM, QD
     Route: 042
     Dates: start: 20200212, end: 20200229
  45. DEXAMETHASONE [Concomitant]
     Active Substance: DEXAMETHASONE
     Indication: Flank pain
     Dosage: 10 MILLIGRAM
     Route: 042
     Dates: start: 20200414, end: 20200414
  46. DICYCLOMINE [Concomitant]
     Active Substance: DICYCLOMINE HYDROCHLORIDE
     Indication: Vomiting
     Dosage: UNK
     Route: 048
     Dates: start: 20200621, end: 20200621

REACTIONS (2)
  - Vascular device infection [Recovered/Resolved]
  - Cholelithiasis [Recovered/Resolved]

NARRATIVE: CASE EVENT DATE: 20210809
